FAERS Safety Report 11774974 (Version 3)
Quarter: 2015Q4

REPORT INFORMATION
  Report Type: Report from Study
  Country: US (occurrence: US)
  Receive Date: 20151124
  Receipt Date: 20151215
  Transmission Date: 20160304
  Serious: Yes (Hospitalization, Other)
  Sender: FDA-Public Use
  Company Number: US-GILEAD-2015-0180569

PATIENT
  Age: 39 Year
  Sex: Female

DRUGS (3)
  1. ADCIRCA [Concomitant]
     Active Substance: TADALAFIL
  2. REMODULIN [Concomitant]
     Active Substance: TREPROSTINIL
  3. AMBRISENTAN [Suspect]
     Active Substance: AMBRISENTAN
     Indication: PULMONARY HYPERTENSION
     Dosage: 10 MG, QD
     Route: 065
     Dates: start: 20150114

REACTIONS (9)
  - Pneumonia bacterial [Unknown]
  - Visual impairment [Not Recovered/Not Resolved]
  - Acute respiratory failure [Unknown]
  - Cataract [Unknown]
  - Blindness unilateral [Unknown]
  - Status asthmaticus [Unknown]
  - Malaise [Unknown]
  - Asthma [Unknown]
  - Right ventricular failure [Unknown]
